FAERS Safety Report 21504886 (Version 1)
Quarter: 2022Q4

REPORT INFORMATION
  Report Type: Spontaneous
  Country: US (occurrence: US)
  Receive Date: 20221025
  Receipt Date: 20221025
  Transmission Date: 20230113
  Serious: No
  Sender: FDA-Public Use
  Company Number: US-ELI_LILLY_AND_COMPANY-US202209013858

PATIENT
  Age: 44 Year
  Sex: Female

DRUGS (3)
  1. MOUNJARO [Suspect]
     Active Substance: TIRZEPATIDE
     Indication: Weight decreased
     Dosage: 5 MG, UNKNOWN
     Route: 058
     Dates: start: 202208, end: 20220920
  2. MOUNJARO [Suspect]
     Active Substance: TIRZEPATIDE
     Indication: Weight decreased
     Dosage: 7.5 MG, UNKNOWN
     Route: 058
     Dates: start: 20220920
  3. MOUNJARO [Suspect]
     Active Substance: TIRZEPATIDE
     Dosage: 7.5 MG, UNKNOWN
     Route: 058
     Dates: start: 20220928

REACTIONS (13)
  - Agitation [Recovered/Resolved]
  - Sleep disorder [Unknown]
  - Abnormal dreams [Unknown]
  - Abnormal uterine bleeding [Recovered/Resolved]
  - Vaginal haemorrhage [Unknown]
  - Feeling abnormal [Unknown]
  - Fatigue [Unknown]
  - Flatulence [Unknown]
  - Abdominal discomfort [Unknown]
  - Inappropriate schedule of product administration [Unknown]
  - Off label use [Unknown]
  - Incorrect dose administered [Unknown]
  - Inappropriate schedule of product administration [Unknown]

NARRATIVE: CASE EVENT DATE: 20220801
